FAERS Safety Report 8288587-2 (Version None)
Quarter: 2012Q2

REPORT INFORMATION
  Report Type: 
  Country: None (occurrence: None)
  Receive Date: 20120416
  Receipt Date: 20120411
  Transmission Date: 20120825
  Serious: Yes (Hospitalization, Disabling, Other)
  Sender: FDA-Public Use
  Company Number: US-MERCK-1110USA01313

PATIENT
  Age: 61 Year
  Sex: Female

DRUGS (4)
  1. CALCIUM (UNSPECIFIED) [Concomitant]
     Route: 048
     Dates: start: 19990101, end: 20050101
  2. FOSAMAX [Suspect]
     Indication: OSTEOPENIA
     Route: 048
     Dates: start: 19990101, end: 20050801
  3. FOSAMAX [Suspect]
     Route: 048
     Dates: end: 20011210
  4. PRILOSEC [Concomitant]
     Route: 048
     Dates: start: 19990901

REACTIONS (19)
  - ANAEMIA POSTOPERATIVE [None]
  - RASH [None]
  - DRUG HYPERSENSITIVITY [None]
  - ADVERSE EVENT [None]
  - HYPERTENSION [None]
  - BLOOD CHOLESTEROL INCREASED [None]
  - GALLBLADDER DISORDER [None]
  - BRONCHITIS [None]
  - DENTAL CARIES [None]
  - DERMATITIS [None]
  - ECZEMA [None]
  - PRURITUS [None]
  - FALL [None]
  - URTICARIA [None]
  - OVARIAN DISORDER [None]
  - FEMUR FRACTURE [None]
  - BLOOD BLISTER [None]
  - LOW TURNOVER OSTEOPATHY [None]
  - GASTROOESOPHAGEAL REFLUX DISEASE [None]
